FAERS Safety Report 7201021-6 (Version None)
Quarter: 2010Q4

REPORT INFORMATION
  Report Type: 
  Country: None (occurrence: None)
  Receive Date: 20101228
  Receipt Date: 20101124
  Transmission Date: 20110411
  Serious: Yes (Hospitalization)
  Sender: FDA-Public Use
  Company Number: JP-AMGEN-JPNSP2010007383

PATIENT

DRUGS (6)
  1. ENBREL [Suspect]
     Indication: RHEUMATOID ARTHRITIS
     Dosage: 25 MG, WEEKLY
     Route: 058
     Dates: start: 20101006, end: 20101016
  2. PREDNISOLONE [Concomitant]
     Indication: RHEUMATOID ARTHRITIS
     Dosage: 5 MG, 1X/DAY
     Route: 048
     Dates: start: 20100519, end: 20101028
  3. PREDNISOLONE [Concomitant]
     Dosage: 2.5 MG, 2X/DAY
     Route: 048
     Dates: start: 20100113, end: 20100209
  4. PREDNISOLONE [Concomitant]
     Dosage: 2 MG, 2X/DAY
     Route: 048
     Dates: start: 20100210, end: 20100518
  5. METHOTREXATE [Concomitant]
     Indication: RHEUMATOID ARTHRITIS
     Dosage: 6MG/DAY
     Route: 048
     Dates: start: 20100916, end: 20100930
  6. METHOTREXATE [Concomitant]
     Dosage: 2MG, 3X/WEEK, 1X/WEEK
     Route: 048
     Dates: start: 20100916, end: 20101001

REACTIONS (2)
  - ABDOMINAL HERNIA [None]
  - HERPES ZOSTER [None]
